FAERS Safety Report 24229899 (Version 1)
Quarter: 2024Q3

REPORT INFORMATION
  Report Type: Spontaneous
  Country: US (occurrence: None)
  Receive Date: 20240820
  Receipt Date: 20240820
  Transmission Date: 20241016
  Serious: No
  Sender: Public
  Company Number: None

PATIENT
  Sex: Female
  Weight: 51.7 kg

DRUGS (1)
  1. CISPLATIN [Suspect]
     Active Substance: CISPLATIN
     Route: 042
     Dates: end: 20240606

REACTIONS (3)
  - Dysphagia [None]
  - Lymphocyte count decreased [None]
  - Hyponatraemia [None]

NARRATIVE: CASE EVENT DATE: 20240606
